FAERS Safety Report 6592746-4 (Version None)
Quarter: 2010Q1

REPORT INFORMATION
  Report Type: 
  Country: None (occurrence: None)
  Receive Date: 20100212
  Receipt Date: 20100127
  Transmission Date: 20100710
  Serious: Yes (Hospitalization)
  Sender: FDA-Public Use
  Company Number: 2010-00132

PATIENT
  Age: 77 Year
  Sex: Female
  Weight: 65 kg

DRUGS (1)
  1. SIMVASTATIN [Suspect]
     Indication: HYPERCHOLESTEROLAEMIA
     Dosage: 80 MG, ORAL
     Route: 048
     Dates: end: 20100119

REACTIONS (6)
  - BLOOD CHOLESTEROL INCREASED [None]
  - INSOMNIA [None]
  - MOBILITY DECREASED [None]
  - MUSCULAR WEAKNESS [None]
  - MYOSITIS [None]
  - TREATMENT NONCOMPLIANCE [None]
